FAERS Safety Report 23647226 (Version 2)
Quarter: 2024Q2

REPORT INFORMATION
  Report Type: Spontaneous
  Country: US (occurrence: US)
  Receive Date: 20240319
  Receipt Date: 20240502
  Transmission Date: 20240716
  Serious: No
  Sender: FDA-Public Use
  Company Number: US-002147023-NVSC2024US059292

PATIENT
  Sex: Female

DRUGS (1)
  1. COSENTYX [Suspect]
     Active Substance: SECUKINUMAB
     Indication: Hereditary spherocytosis
     Dosage: 300 MG, QMO
     Route: 058
     Dates: start: 20231101, end: 20240314

REACTIONS (1)
  - Bacterial test positive [Not Recovered/Not Resolved]
